FAERS Safety Report 9479266 (Version 1)
Quarter: 2013Q3

REPORT INFORMATION
  Report Type: Spontaneous
  Country: US (occurrence: US)
  Receive Date: 20130827
  Receipt Date: 20130827
  Transmission Date: 20140515
  Serious: No
  Sender: FDA-Public Use
  Company Number: US-BAYER-2013-103168

PATIENT
  Age: 51 Year
  Sex: Female
  Weight: 61 kg

DRUGS (2)
  1. ALEVE CAPLET [Suspect]
     Indication: HEADACHE
     Dosage: 1 DF, PRN
     Route: 048
     Dates: start: 20130705, end: 201307
  2. BAYER ADVANCED ASPIRIN EXTRA STRENGTH [Suspect]
     Dosage: 1 DF, PRN
     Route: 048
     Dates: start: 201306, end: 201306

REACTIONS (10)
  - Nausea [Recovered/Resolved]
  - Dizziness [Recovered/Resolved]
  - Nightmare [Recovered/Resolved]
  - Drug ineffective [None]
  - Somnolence [Recovered/Resolved]
  - Euphoric mood [Recovered/Resolved]
  - Abdominal pain upper [Recovered/Resolved]
  - Off label use [Recovered/Resolved]
  - Drug ineffective [None]
  - Epigastric discomfort [Recovered/Resolved]
